FAERS Safety Report 4467894-5 (Version None)
Quarter: 2004Q4

REPORT INFORMATION
  Report Type: 
  Country: None (occurrence: None)
  Receive Date: 20041001
  Receipt Date: 20040920
  Transmission Date: 20050328
  Serious: Yes (Death, Hospitalization)
  Sender: FDA-Public Use
  Company Number: S04-USA-04104-01

PATIENT
  Age: 77 Year
  Sex: Female

DRUGS (13)
  1. NAMENDA [Suspect]
     Indication: DEMENTIA ALZHEIMER'S TYPE
     Dosage: 45 MG QD PO
     Route: 048
     Dates: start: 20040701, end: 20040712
  2. NAMENDA [Suspect]
     Indication: DEMENTIA ALZHEIMER'S TYPE
     Dosage: 5 MG QD PO
     Route: 048
     Dates: start: 20040101, end: 20040101
  3. NAMENDA [Suspect]
     Indication: DEMENTIA ALZHEIMER'S TYPE
     Dosage: 10 MG QD PO
     Route: 048
     Dates: start: 20040101, end: 20040101
  4. NAMENDA [Suspect]
     Indication: DEMENTIA ALZHEIMER'S TYPE
     Dosage: 15 MG QD PO
     Route: 048
     Dates: start: 20040101, end: 20040101
  5. NAMENDA [Suspect]
     Indication: DEMENTIA ALZHEIMER'S TYPE
     Dosage: 20 MG QD PO
     Route: 048
     Dates: start: 20040101, end: 20040101
  6. EXELON [Concomitant]
  7. HALDOL [Concomitant]
  8. ZOCOR [Concomitant]
  9. ISOSORBIDE [Concomitant]
  10. SYNTHROID [Concomitant]
  11. MIACALCIN [Concomitant]
  12. POTASSIUM CHLORIDE [Concomitant]
  13. DOCUSATE [Concomitant]

REACTIONS (7)
  - ACCIDENTAL OVERDOSE [None]
  - BLOOD PRESSURE SYSTOLIC INCREASED [None]
  - CEREBRAL INFARCTION [None]
  - CEREBROVASCULAR ACCIDENT [None]
  - COMA [None]
  - DISORIENTATION [None]
  - MEDICATION ERROR [None]
